FAERS Safety Report 9072105 (Version 2)
Quarter: 2014Q1

REPORT INFORMATION
  Report Type: Spontaneous
  Country: US (occurrence: US)
  Receive Date: 20130129
  Receipt Date: 20140131
  Transmission Date: 20141002
  Serious: Yes (Hospitalization, Other)
  Sender: FDA-Public Use
  Company Number: US-PFIZER INC-2013030228

PATIENT
  Age: 43 Year
  Sex: Female

DRUGS (2)
  1. REVATIO [Suspect]
     Indication: PULMONARY ARTERIAL HYPERTENSION
     Dosage: 20 MG, 3X/DAY
     Dates: start: 20120727
  2. REVATIO [Suspect]
     Indication: COR PULMONALE CHRONIC
     Dosage: 40 MG, 3X/DAY
     Dates: start: 20120727

REACTIONS (2)
  - Cardiac failure [Unknown]
  - Off label use [Unknown]
